FAERS Safety Report 17694688 (Version 2)
Quarter: 2020Q2

REPORT INFORMATION
  Report Type: Spontaneous
  Country: US (occurrence: US)
  Receive Date: 20200422
  Receipt Date: 20200422
  Transmission Date: 20200714
  Serious: Yes (Death, Hospitalization)
  Sender: FDA-Public Use
  Company Number: US-CELGENEUS-USA-20200406166

PATIENT
  Sex: Male

DRUGS (1)
  1. REVLIMID [Suspect]
     Active Substance: LENALIDOMIDE
     Indication: PLASMA CELL MYELOMA
     Route: 048

REACTIONS (6)
  - Pancreas infection [Unknown]
  - Weight decreased [Unknown]
  - Pancreatic cyst [Unknown]
  - Vomiting [Unknown]
  - Catheter site haemorrhage [Unknown]
  - Adverse drug reaction [Fatal]
